FAERS Safety Report 5003939-1 (Version None)
Quarter: 2006Q2

REPORT INFORMATION
  Report Type: 
  Country: None (occurrence: None)
  Receive Date: 20060515
  Receipt Date: 20060515
  Transmission Date: 20061013
  Serious: No
  Sender: FDA-Public Use
  Company Number: None

PATIENT
  Age: 70 Year
  Sex: Male
  Weight: 96.6 kg

DRUGS (15)
  1. AVANDIA [Suspect]
     Indication: DIABETES MELLITUS
     Dosage: 4 MG   TWICE DAILY  ORAL
     Route: 048
     Dates: start: 20041013, end: 20050518
  2. AVANDIA [Suspect]
     Indication: DIABETES MELLITUS
     Dosage: 4 MG   TWICE DAILY  ORAL
     Route: 048
     Dates: start: 20050813
  3. ASPIRIN [Concomitant]
  4. ULTRAM [Concomitant]
  5. PEPCID [Concomitant]
  6. GLUCOVANCE [Concomitant]
  7. LIPITOR [Concomitant]
  8. TOPROL-XL [Concomitant]
  9. VIAGRA [Concomitant]
  10. HYDROCHLOROTHIAZIDE [Concomitant]
  11. NEURONTIN [Concomitant]
  12. COMBIVENT [Concomitant]
  13. MYLANTA [Concomitant]
  14. DIPROLENE [Concomitant]
  15. ENALAPRIL [Concomitant]

REACTIONS (2)
  - OEDEMA PERIPHERAL [None]
  - PAIN IN EXTREMITY [None]
